FAERS Safety Report 19181213 (Version 1)
Quarter: 2021Q2

REPORT INFORMATION
  Report Type: Spontaneous
  Country: US (occurrence: US)
  Receive Date: 20210426
  Receipt Date: 20210426
  Transmission Date: 20210717
  Serious: No
  Sender: FDA-Public Use
  Company Number: US-AMGEN-USASP2021062269

PATIENT
  Age: 72 Year
  Sex: Female

DRUGS (2)
  1. OTEZLA [Suspect]
     Active Substance: APREMILAST
     Indication: PSORIATIC ARTHROPATHY
     Dosage: UNK
     Route: 048
     Dates: start: 20200505
  2. OTEZLA [Suspect]
     Active Substance: APREMILAST
     Dosage: UNK UNK, QD
     Route: 048

REACTIONS (1)
  - Diarrhoea [Unknown]
